FAERS Safety Report 17391340 (Version 4)
Quarter: 2020Q1

REPORT INFORMATION
  Report Type: Spontaneous
  Country: US (occurrence: US)
  Receive Date: 20200207
  Receipt Date: 20200330
  Transmission Date: 20200409
  Serious: Yes (Hospitalization)
  Sender: FDA-Public Use
  Company Number: US-ACTELION-A-US2020-201380

PATIENT
  Age: 44 Year
  Sex: Female
  Weight: 88.44 kg

DRUGS (4)
  1. UPTRAVI [Suspect]
     Active Substance: SELEXIPAG
     Indication: PULMONARY ARTERIAL HYPERTENSION
     Dosage: 1600 MCG, BID
     Route: 048
  2. UPTRAVI [Suspect]
     Active Substance: SELEXIPAG
     Dosage: 1200 MCG, BID
     Route: 048
     Dates: start: 201911
  3. UPTRAVI [Suspect]
     Active Substance: SELEXIPAG
     Dosage: UNK
     Route: 048
  4. SILDENAFIL CITRATE. [Concomitant]
     Active Substance: SILDENAFIL CITRATE

REACTIONS (22)
  - Condition aggravated [Unknown]
  - Right ventricular failure [Unknown]
  - Right ventricular dysfunction [Unknown]
  - Nausea [Not Recovered/Not Resolved]
  - Brain natriuretic peptide increased [Unknown]
  - Hepatitis [Unknown]
  - Liver disorder [Unknown]
  - Hepatomegaly [Unknown]
  - Hepatic steatosis [Unknown]
  - Influenza [Recovering/Resolving]
  - Splenomegaly [Unknown]
  - Right ventricular dilatation [Unknown]
  - Blood bilirubin increased [Unknown]
  - Headache [Not Recovered/Not Resolved]
  - Nephrolithiasis [Unknown]
  - Blood alkaline phosphatase increased [Unknown]
  - Migraine [Not Recovered/Not Resolved]
  - Biopsy liver [Unknown]
  - Fluid overload [Unknown]
  - Portal hypertension [Unknown]
  - Pulmonary arterial hypertension [Unknown]
  - Tricuspid valve incompetence [Unknown]

NARRATIVE: CASE EVENT DATE: 20200306
